FAERS Safety Report 11527103 (Version 1)
Quarter: 2015Q3

REPORT INFORMATION
  Report Type: Spontaneous
  Country: US (occurrence: US)
  Receive Date: 20150903
  Receipt Date: 20150903
  Transmission Date: 20151125
  Serious: No
  Sender: FDA-Public Use
  Company Number: US-ELI_LILLY_AND_COMPANY-US200907002614

PATIENT
  Age: 57 Year
  Sex: Female

DRUGS (5)
  1. METFORMIN [Concomitant]
     Active Substance: METFORMIN HYDROCHLORIDE
     Indication: BLOOD GLUCOSE INCREASED
     Dates: start: 200903
  2. HUMALOG MIX75/25 [Suspect]
     Active Substance: INSULIN LISPRO
     Dates: start: 200903, end: 2009
  3. GLIPIZIDE. [Concomitant]
     Active Substance: GLIPIZIDE
  4. HUMALOG MIX75/25 [Suspect]
     Active Substance: INSULIN LISPRO
     Dosage: UNK, UNK
     Dates: start: 20090519, end: 20090619
  5. LISINOPRIL. [Concomitant]
     Active Substance: LISINOPRIL

REACTIONS (6)
  - Blood glucose increased [Recovered/Resolved]
  - Drug dispensing error [Unknown]
  - Expired product administered [Recovered/Resolved]
  - Drug dispensing error [Recovered/Resolved]
  - Blood glucose increased [Unknown]
  - Expired product administered [Unknown]

NARRATIVE: CASE EVENT DATE: 2009
